FAERS Safety Report 6720742-2 (Version None)
Quarter: 2010Q2

REPORT INFORMATION
  Report Type: 
  Country: None (occurrence: None)
  Receive Date: 20100512
  Receipt Date: 20100503
  Transmission Date: 20101027
  Serious: Yes (Hospitalization, Other)
  Sender: FDA-Public Use
  Company Number: US-BIOGENIDEC-2010BI014878

PATIENT
  Sex: Female

DRUGS (9)
  1. AVONEX [Suspect]
     Indication: MULTIPLE SCLEROSIS
     Route: 030
  2. COPAXONE [Concomitant]
     Indication: MULTIPLE SCLEROSIS
     Route: 058
     Dates: start: 20100305, end: 20100325
  3. COREG [Concomitant]
  4. DETROL LA [Concomitant]
  5. KEPPRA [Concomitant]
  6. LAMICTAL [Concomitant]
  7. LISINOPRIL [Concomitant]
  8. DILANTIN [Concomitant]
     Indication: CONVULSION
  9. MOTRIN [Concomitant]
     Indication: PROPHYLAXIS

REACTIONS (4)
  - CONVULSION [None]
  - PYREXIA [None]
  - SECONDARY PROGRESSIVE MULTIPLE SCLEROSIS [None]
  - STATUS EPILEPTICUS [None]
